FAERS Safety Report 9350940 (Version 4)
Quarter: 2013Q4

REPORT INFORMATION
  Report Type: Spontaneous
  Country: AT (occurrence: AT)
  Receive Date: 20130617
  Receipt Date: 20131106
  Transmission Date: 20140711
  Serious: Yes (Other)
  Sender: FDA-Public Use
  Company Number: AT-AMGEN-AUSSP2013042039

PATIENT
  Age: 61 Year
  Sex: Male
  Weight: 97 kg

DRUGS (4)
  1. XGEVA [Suspect]
     Indication: METASTASES TO BONE
     Dosage: 120 MG, Q4WK
     Route: 058
     Dates: start: 20111206, end: 20130613
  2. CABAZITAXEL [Concomitant]
     Indication: PROSTATE CANCER METASTATIC
     Dosage: UNK UNK, Q3WK
     Route: 042
     Dates: start: 20130320
  3. PANTOPRAZOLE [Concomitant]
     Indication: DYSPEPSIA
     Dosage: 40 MG, QD
     Route: 048
  4. CAL D VITA [Concomitant]
     Indication: METASTASES TO BONE
     Dosage: UNK UNK, QD
     Route: 048

REACTIONS (3)
  - Impaired healing [Unknown]
  - Osteonecrosis of jaw [Not Recovered/Not Resolved]
  - Tooth disorder [Unknown]
